FAERS Safety Report 17779959 (Version 14)
Quarter: 2021Q4

REPORT INFORMATION
  Report Type: Spontaneous
  Country: CA (occurrence: CA)
  Receive Date: 20200514
  Receipt Date: 20211026
  Transmission Date: 20220303
  Serious: Yes (Other)
  Sender: FDA-Public Use
  Company Number: CA-CELLTRION INC.-2019CA023292

PATIENT

DRUGS (30)
  1. INFLECTRA [Suspect]
     Active Substance: INFLIXIMAB-DYYB
     Indication: Crohn^s disease
     Dosage: 10 MG/KG OR 700MG, EVERY 6 WEEKS
     Route: 042
     Dates: start: 20190821, end: 20190821
  2. INFLECTRA [Suspect]
     Active Substance: INFLIXIMAB-DYYB
     Dosage: 10 MG/KG OR 700MG, EVERY 6 WEEKS
     Route: 042
     Dates: start: 20191004, end: 20191004
  3. INFLECTRA [Suspect]
     Active Substance: INFLIXIMAB-DYYB
     Dosage: 10 MG/KG OR 700MG, EVERY 6 WEEKS
     Route: 042
     Dates: start: 20191004, end: 20191004
  4. INFLECTRA [Suspect]
     Active Substance: INFLIXIMAB-DYYB
     Dosage: 10 MG/KG OR 700MG, EVERY 6 WEEKS
     Route: 042
     Dates: start: 20191004, end: 20191004
  5. INFLECTRA [Suspect]
     Active Substance: INFLIXIMAB-DYYB
     Dosage: 10 MG/KG OR 700MG, EVERY 6 WEEKS
     Route: 042
     Dates: start: 20191113, end: 20191113
  6. INFLECTRA [Suspect]
     Active Substance: INFLIXIMAB-DYYB
     Dosage: 10 MG/KG OR 700MG, EVERY 6 WEEKS
     Route: 042
     Dates: start: 20191231, end: 20191231
  7. INFLECTRA [Suspect]
     Active Substance: INFLIXIMAB-DYYB
     Dosage: 10 MG/KG OR 700MG, EVERY 6 WEEKS
     Route: 042
     Dates: start: 20200220, end: 20200220
  8. INFLECTRA [Suspect]
     Active Substance: INFLIXIMAB-DYYB
     Dosage: 10 MG/KG OR 700MG, EVERY 6 WEEKS
     Route: 042
     Dates: start: 20200326, end: 20200326
  9. INFLECTRA [Suspect]
     Active Substance: INFLIXIMAB-DYYB
     Dosage: 10 MG/KG OR 700MG, EVERY 6 WEEKS
     Route: 042
     Dates: start: 20200326, end: 20200326
  10. INFLECTRA [Suspect]
     Active Substance: INFLIXIMAB-DYYB
     Dosage: 10 MG/KG OR 700MG, EVERY 6 WEEKS
     Route: 042
     Dates: start: 20200507, end: 20200507
  11. INFLECTRA [Suspect]
     Active Substance: INFLIXIMAB-DYYB
     Dosage: 10 MG/KG OR 700MG, EVERY 6 WEEKS
     Route: 042
     Dates: start: 20200616, end: 20200616
  12. INFLECTRA [Suspect]
     Active Substance: INFLIXIMAB-DYYB
     Dosage: 10 MG/KG OR 700MG, EVERY 6 WEEKS
     Route: 042
     Dates: start: 20200623, end: 20200623
  13. INFLECTRA [Suspect]
     Active Substance: INFLIXIMAB-DYYB
     Dosage: 10 MG/KG OR 700MG, EVERY 6 WEEKS
     Route: 042
     Dates: start: 20200730, end: 20200730
  14. INFLECTRA [Suspect]
     Active Substance: INFLIXIMAB-DYYB
     Dosage: 10 MG/KG OR 700MG, EVERY 6 WEEKS
     Route: 042
     Dates: start: 20200730, end: 20200730
  15. INFLECTRA [Suspect]
     Active Substance: INFLIXIMAB-DYYB
     Dosage: 10 MG/KG OR 700MG, EVERY 6 WEEKS
     Route: 042
     Dates: start: 20200909
  16. INFLECTRA [Suspect]
     Active Substance: INFLIXIMAB-DYYB
     Dosage: 10 MG/KG OR 700MG, EVERY 6 WEEKS
     Route: 042
     Dates: start: 20201019
  17. INFLECTRA [Suspect]
     Active Substance: INFLIXIMAB-DYYB
     Dosage: 10 MG/KG OR 700MG, EVERY 6 WEEKS
     Route: 042
     Dates: start: 20201130
  18. INFLECTRA [Suspect]
     Active Substance: INFLIXIMAB-DYYB
     Dosage: 10 MG/KG OR 700MG, EVERY 6 WEEKS
     Route: 042
     Dates: start: 20201130
  19. INFLECTRA [Suspect]
     Active Substance: INFLIXIMAB-DYYB
     Dosage: 10 MG/KG OR 700MG, EVERY 6 WEEKS
     Route: 042
     Dates: start: 20210113
  20. INFLECTRA [Suspect]
     Active Substance: INFLIXIMAB-DYYB
     Dosage: 10 MG/KG OR 700MG, EVERY 6 WEEKS
     Route: 042
     Dates: start: 20210224
  21. INFLECTRA [Suspect]
     Active Substance: INFLIXIMAB-DYYB
     Dosage: 10 MG/KG OR 700MG, EVERY 6 WEEKS
     Route: 042
     Dates: start: 20210406
  22. INFLECTRA [Suspect]
     Active Substance: INFLIXIMAB-DYYB
     Dosage: 10 MG/KG OR 700MG, EVERY 6 WEEKS
     Route: 042
     Dates: start: 20210519
  23. INFLECTRA [Suspect]
     Active Substance: INFLIXIMAB-DYYB
     Dosage: 10 MG/KG OR 700MG, EVERY 6 WEEKS
     Route: 042
     Dates: start: 20210629
  24. INFLECTRA [Suspect]
     Active Substance: INFLIXIMAB-DYYB
     Dosage: 10 MG/KG OR 700MG, EVERY 6 WEEKS
     Route: 042
     Dates: start: 20210811
  25. INFLECTRA [Suspect]
     Active Substance: INFLIXIMAB-DYYB
     Dosage: 10 MG/KG OR 700MG, EVERY 6 WEEKS
     Route: 042
     Dates: start: 20210922, end: 2021
  26. FOSAMAX [Concomitant]
     Active Substance: ALENDRONATE SODIUM
     Dosage: 1 DF, DOSAGE INFO UNKNOWN
     Route: 065
  27. FERROUS GLUCONATE [Concomitant]
     Active Substance: FERROUS GLUCONATE
     Dosage: 1 DF, DOSAGE INFO UNKNOWN
     Route: 065
  28. PROPRANOLOL [Concomitant]
     Active Substance: PROPRANOLOL HYDROCHLORIDE
     Dosage: 1 DF,DOSAGE INFO UNKNOWN
  29. SULFASALAZINE [Concomitant]
     Active Substance: SULFASALAZINE
     Dosage: 4000 MG, 1X/DAY
  30. SHINGRIX [Concomitant]
     Active Substance: RECOMBINANT VARICELLA ZOSTER VIRUS (VZV) GLYCOPROTEIN E
     Indication: Immunisation
     Dosage: UNK
     Dates: start: 20210516, end: 20210516

REACTIONS (17)
  - Condition aggravated [Recovering/Resolving]
  - Fall [Unknown]
  - Compression fracture [Unknown]
  - Oxygen saturation decreased [Unknown]
  - Drug specific antibody present [Unknown]
  - Drug level above therapeutic [Unknown]
  - Sinusitis [Unknown]
  - Heart rate decreased [Unknown]
  - Arthralgia [Unknown]
  - Aphthous ulcer [Unknown]
  - Blood pressure increased [Unknown]
  - Blood pressure fluctuation [Unknown]
  - Drug ineffective [Unknown]
  - Off label use [Unknown]
  - Off label use [Unknown]
  - Intentional product use issue [Unknown]
  - Magnetic resonance imaging abnormal [Unknown]

NARRATIVE: CASE EVENT DATE: 20190821
